FAERS Safety Report 13231274 (Version 2)
Quarter: 2017Q2

REPORT INFORMATION
  Report Type: Spontaneous
  Country: US (occurrence: US)
  Receive Date: 20170214
  Receipt Date: 20170425
  Transmission Date: 20170830
  Serious: No
  Sender: FDA-Public Use
  Company Number: US-009507513-1702USA001213

PATIENT
  Sex: Male

DRUGS (1)
  1. ZEPATIER [Suspect]
     Active Substance: ELBASVIR\GRAZOPREVIR
     Indication: HEPATITIS C
     Dosage: TOTAL DAILY DOSE: 50-100 MG, TAKE ONE TABLET BY MOUTH EVERY DAY
     Route: 048

REACTIONS (4)
  - Liver disorder [Unknown]
  - Oedema [Unknown]
  - Fatigue [Unknown]
  - Rash [Unknown]
